FAERS Safety Report 9751672 (Version 3)
Quarter: 2015Q4

REPORT INFORMATION
  Report Type: Report from Study
  Country: US (occurrence: US)
  Receive Date: 20131213
  Receipt Date: 20151028
  Transmission Date: 20160305
  Serious: Yes (Other)
  Sender: FDA-Public Use
  Company Number: US-ROCHE-1301332

PATIENT
  Age: 50 Year
  Sex: Female
  Weight: 74.8 kg

DRUGS (52)
  1. LEUCOVORIN. [Concomitant]
     Active Substance: LEUCOVORIN
     Dosage: 537MG/53.7ML
     Route: 042
  2. CALCIUM GLUCONATE. [Concomitant]
     Active Substance: CALCIUM GLUCONATE
     Dosage: 1G PRE- AND 1G POST-OXALIPLATIN
     Route: 042
     Dates: start: 20120515
  3. ALTEPLASE [Concomitant]
     Active Substance: ALTEPLASE
     Route: 042
  4. AVASTIN [Suspect]
     Active Substance: BEVACIZUMAB
     Indication: RECTAL CANCER
     Dosage: 11/SEP/2012
     Route: 042
     Dates: start: 20120214
  5. LEXAPRO [Concomitant]
     Active Substance: ESCITALOPRAM OXALATE
     Indication: DEPRESSION
     Dosage: LOW DOSE MAINTENANCE
     Route: 065
  6. OXALIPLATIN. [Concomitant]
     Active Substance: OXALIPLATIN
     Route: 042
     Dates: start: 20120515
  7. 5-FU [Concomitant]
     Active Substance: FLUOROURACIL
     Dosage: 3222MG/N6/200ML TO INFUSE OVER 46HOURS
     Route: 065
  8. 5-FU [Concomitant]
     Active Substance: FLUOROURACIL
     Route: 065
  9. LEUCOVORIN. [Concomitant]
     Active Substance: LEUCOVORIN
     Route: 042
  10. ATIVAN [Concomitant]
     Active Substance: LORAZEPAM
     Indication: NAUSEA
     Route: 042
     Dates: start: 20120605
  11. 5-FU [Concomitant]
     Active Substance: FLUOROURACIL
     Route: 042
  12. 5-FU [Concomitant]
     Active Substance: FLUOROURACIL
     Route: 065
  13. 5-FU [Concomitant]
     Active Substance: FLUOROURACIL
     Dosage: 4250MG CI PER HOMEMED
     Route: 065
  14. NORCO [Concomitant]
     Active Substance: ACETAMINOPHEN\HYDROCODONE BITARTRATE
  15. ALOXI [Concomitant]
     Active Substance: PALONOSETRON HYDROCHLORIDE
     Indication: NAUSEA
     Route: 065
     Dates: start: 20120214
  16. ATIVAN ORAL [Concomitant]
     Indication: NAUSEA
     Dosage: 0.5-1 MG
     Route: 048
  17. LEUCOVORIN. [Concomitant]
     Active Substance: LEUCOVORIN
     Route: 042
     Dates: start: 20120911
  18. MAGNESIUM SULFATE. [Concomitant]
     Active Substance: MAGNESIUM SULFATE
     Dosage: 1G PRE- AND 1G POST-OXALIPLATIN
     Route: 042
     Dates: start: 20120515
  19. XELODA [Suspect]
     Active Substance: CAPECITABINE
     Indication: COLON CANCER
     Route: 048
     Dates: start: 20130905, end: 20131105
  20. OXALIPLATIN. [Concomitant]
     Active Substance: OXALIPLATIN
     Indication: COLON CANCER
     Dosage: FOR 3-4 MONTHS
     Route: 065
     Dates: start: 2011
  21. 5-FU [Concomitant]
     Active Substance: FLUOROURACIL
     Indication: COLON CANCER
     Route: 065
     Dates: start: 2011
  22. 5-FU [Concomitant]
     Active Substance: FLUOROURACIL
     Dosage: 3420MG/N6/200ML TO INFUSE OVER 46 HOURS
     Route: 065
  23. 5-FU [Concomitant]
     Active Substance: FLUOROURACIL
     Route: 065
  24. COMPAZINE [Concomitant]
     Active Substance: PROCHLORPERAZINE MALEATE
     Indication: NAUSEA
     Route: 048
     Dates: start: 20120605
  25. NICOTINE. [Concomitant]
     Active Substance: NICOTINE
     Route: 062
  26. CAMPTOSAR [Concomitant]
     Active Substance: IRINOTECAN HYDROCHLORIDE
     Route: 042
     Dates: start: 20130326
  27. CAMPTOSAR [Concomitant]
     Active Substance: IRINOTECAN HYDROCHLORIDE
     Dosage: 242MG/562.1ML
     Route: 042
  28. AVASTIN [Suspect]
     Active Substance: BEVACIZUMAB
     Dosage: 15/MAY/2012, 22/JAN/2013, 08/JAN/2013, 05/JUN/2012
     Route: 042
     Dates: start: 20120214
  29. 5-FU [Concomitant]
     Active Substance: FLUOROURACIL
     Route: 065
  30. 5-FU [Concomitant]
     Active Substance: FLUOROURACIL
     Dosage: 4390MG/NS/200ML TO INFUSE OVER 46 HOURS
     Route: 065
  31. LEUCOVORIN. [Concomitant]
     Active Substance: LEUCOVORIN
     Route: 042
     Dates: start: 20121023
  32. ATIVAN [Concomitant]
     Active Substance: LORAZEPAM
     Route: 065
     Dates: start: 20121023
  33. 5-FU [Concomitant]
     Active Substance: FLUOROURACIL
     Dosage: OVER 46 HOURS
     Route: 042
     Dates: start: 20121023
  34. 5-FU [Concomitant]
     Active Substance: FLUOROURACIL
     Dosage: 4270MG/NS/200ML TO INFUSE OVER 46HOURS
     Route: 065
  35. BENADRYL [Concomitant]
     Active Substance: DIPHENHYDRAMINE HYDROCHLORIDE
  36. ALOXI [Concomitant]
     Active Substance: PALONOSETRON HYDROCHLORIDE
     Route: 040
     Dates: start: 20120515
  37. ZOFRAN [Concomitant]
     Active Substance: ONDANSETRON HYDROCHLORIDE
     Route: 048
     Dates: start: 20120911
  38. AVASTIN [Suspect]
     Active Substance: BEVACIZUMAB
     Indication: COLON CANCER
     Route: 065
     Dates: start: 2011
  39. AVASTIN [Suspect]
     Active Substance: BEVACIZUMAB
     Route: 065
  40. 5-FU [Concomitant]
     Active Substance: FLUOROURACIL
     Dosage: CONTINUOUS INFUSION
     Route: 042
     Dates: start: 20120515
  41. 5-FU [Concomitant]
     Active Substance: FLUOROURACIL
     Route: 065
  42. 5-FU [Concomitant]
     Active Substance: FLUOROURACIL
     Route: 065
  43. 5-FU [Concomitant]
     Active Substance: FLUOROURACIL
     Route: 065
  44. IRINOTECAN [Concomitant]
     Active Substance: IRINOTECAN
     Indication: COLON CANCER
  45. EMEND [Concomitant]
     Active Substance: APREPITANT
     Indication: NAUSEA
     Route: 042
  46. LEUCOVORIN. [Concomitant]
     Active Substance: LEUCOVORIN
     Route: 042
     Dates: start: 20120605
  47. LEUCOVORIN. [Concomitant]
     Active Substance: LEUCOVORIN
     Route: 042
     Dates: start: 20130108
  48. LEUCOVORIN. [Concomitant]
     Active Substance: LEUCOVORIN
     Route: 042
     Dates: start: 20130205
  49. CAMPTOSAR [Concomitant]
     Active Substance: IRINOTECAN HYDROCHLORIDE
     Route: 042
  50. ATROPINE. [Concomitant]
     Active Substance: ATROPINE
     Route: 042
  51. AVASTIN [Suspect]
     Active Substance: BEVACIZUMAB
     Route: 042
     Dates: start: 20130205
  52. LEUCOVORIN. [Concomitant]
     Active Substance: LEUCOVORIN
     Route: 042
     Dates: start: 20120515

REACTIONS (34)
  - Nausea [Recovering/Resolving]
  - Lacrimation increased [Recovered/Resolved]
  - Stomatitis [Unknown]
  - Ill-defined disorder [Unknown]
  - Dehydration [Recovering/Resolving]
  - Erythema [Recovering/Resolving]
  - Rhinorrhoea [Recovered/Resolved]
  - Swollen tongue [Recovered/Resolved]
  - Vulvovaginal pain [Not Recovered/Not Resolved]
  - Muscle spasms [Not Recovered/Not Resolved]
  - Skin exfoliation [Recovering/Resolving]
  - Gingival ulceration [Not Recovered/Not Resolved]
  - Abdominal pain upper [Recovering/Resolving]
  - Skin fissures [Recovering/Resolving]
  - Dry eye [Recovering/Resolving]
  - Arthralgia [Unknown]
  - Myalgia [Unknown]
  - Headache [Unknown]
  - Abdominal discomfort [Unknown]
  - Feeling of despair [Unknown]
  - Fatigue [Unknown]
  - Nasal dryness [Recovering/Resolving]
  - Abdominal distension [Recovered/Resolved]
  - Glossitis [Recovered/Resolved]
  - Constipation [Unknown]
  - Musculoskeletal chest pain [Unknown]
  - Fall [Unknown]
  - Peripheral swelling [Recovering/Resolving]
  - Haemorrhage [Recovering/Resolving]
  - Dyspepsia [Recovered/Resolved]
  - Neoplasm [Unknown]
  - Salivary gland enlargement [Recovered/Resolved]
  - Diarrhoea [Unknown]
  - Mucous membrane disorder [Unknown]

NARRATIVE: CASE EVENT DATE: 2011
